FAERS Safety Report 14109211 (Version 8)
Quarter: 2019Q4

REPORT INFORMATION
  Report Type: Spontaneous
  Country: KR (occurrence: KR)
  Receive Date: 20171019
  Receipt Date: 20191216
  Transmission Date: 20200122
  Serious: Yes (Other)
  Sender: FDA-Public Use
  Company Number: KR-009507513-1710KOR007667

PATIENT
  Age: 45 Year
  Sex: Female
  Weight: 74.1 kg

DRUGS (13)
  1. CYTARABINE. [Suspect]
     Active Substance: CYTARABINE
     Indication: ACUTE MYELOID LEUKAEMIA
     Dosage: 3560 MILLIGRAM, QD
     Route: 042
     Dates: start: 20170503
  2. ONSETRON [Concomitant]
     Active Substance: ONDANSETRON
     Indication: PROPHYLAXIS OF NAUSEA AND VOMITING
     Dosage: 1 VIAL, BID (FORMULATION: VIAL)
     Route: 042
     Dates: start: 20170503, end: 20170509
  3. NOXAFIL [Suspect]
     Active Substance: POSACONAZOLE
     Indication: ANTIFUNGAL PROPHYLAXIS
     Dosage: 300 MG TWICE A DAY
     Route: 048
     Dates: start: 20170503, end: 20170503
  4. GRASIN [Concomitant]
     Indication: PROPHYLAXIS
     Dosage: 600 MICROGRAM, QD
     Route: 058
     Dates: start: 20170502, end: 20170507
  5. URSA TABLETS [Concomitant]
     Indication: HEPATITIS B CORE ANTIBODY POSITIVE
     Dosage: 1 TABLET, THREE TIMES A DAY (TID)
     Route: 048
     Dates: start: 20170501
  6. URSA TABLETS [Concomitant]
     Dosage: 1 TABLET, THREE TIMES A DAY (TID)
     Route: 048
     Dates: start: 20170501
  7. ONSETRON [Concomitant]
     Active Substance: ONDANSETRON
     Dosage: 1 VIAL, BID (FORMULATION: VIAL)
     Route: 042
     Dates: start: 20170503, end: 20170509
  8. LEUSTATIN [Concomitant]
     Active Substance: CLADRIBINE
     Indication: ACUTE MYELOID LEUKAEMIA
     Dosage: 6 MILLIGRAM, QD
     Route: 042
     Dates: start: 20170621, end: 20170625
  9. NOXAFIL [Suspect]
     Active Substance: POSACONAZOLE
     Dosage: 300 MG ONCE A DAY
     Route: 048
     Dates: start: 20170504, end: 20170705
  10. ALLOPURINOL. [Concomitant]
     Active Substance: ALLOPURINOL
     Dosage: 1 TABLET, THREE TIMES A DAY (TID)
     Route: 048
     Dates: start: 20170503, end: 20170623
  11. ALLOPURINOL. [Concomitant]
     Active Substance: ALLOPURINOL
     Indication: PROPHYLAXIS
     Dosage: 1 TABLET, THREE TIMES A DAY (TID)
     Route: 048
     Dates: start: 20170503, end: 20170623
  12. FLUDARA [Concomitant]
     Active Substance: FLUDARABINE PHOSPHATE
     Indication: ACUTE MYELOID LEUKAEMIA
     Dosage: 53 MILLIGRAM, QD
     Route: 042
     Dates: start: 20170503, end: 20170507
  13. ZAVEDOS [Concomitant]
     Active Substance: IDARUBICIN
     Indication: ACUTE MYELOID LEUKAEMIA
     Dosage: 17 MILLIGRAM, QD
     Route: 042
     Dates: start: 20170503, end: 20170505

REACTIONS (5)
  - Enterococcal bacteraemia [Recovered/Resolved]
  - Headache [Recovered/Resolved]
  - Febrile neutropenia [Recovered/Resolved]
  - Eczema [Recovered/Resolved]
  - Chest pain [Recovered/Resolved]

NARRATIVE: CASE EVENT DATE: 20170503
